FAERS Safety Report 10004130 (Version 3)
Quarter: 2014Q3

REPORT INFORMATION
  Report Type: Spontaneous
  Country: US (occurrence: US)
  Receive Date: 20140312
  Receipt Date: 20140912
  Transmission Date: 20150326
  Serious: No
  Sender: FDA-Public Use
  Company Number: US-INCYTE CORPORATION-2014IN000023

PATIENT
  Age: 75 Year
  Sex: Female
  Weight: 72.56 kg

DRUGS (5)
  1. JAKAFI [Suspect]
     Active Substance: RUXOLITINIB
     Indication: MYELOFIBROSIS
     Dosage: 10 MG, BID
     Route: 048
     Dates: start: 20131130
  2. ADVIL [Concomitant]
     Active Substance: IBUPROFEN
  3. BENICAR [Concomitant]
     Active Substance: OLMESARTAN MEDOXOMIL
  4. BENICAR HCT [Concomitant]
     Active Substance: HYDROCHLOROTHIAZIDE\OLMESARTAN MEDOXOMIL
  5. ASPIRIN. [Concomitant]
     Active Substance: ASPIRIN

REACTIONS (9)
  - Laboratory test abnormal [Unknown]
  - Contusion [Not Recovered/Not Resolved]
  - Drug dose omission [Unknown]
  - Platelet count increased [Not Recovered/Not Resolved]
  - Hypertension [Not Recovered/Not Resolved]
  - Treatment noncompliance [Unknown]
  - Eye disorder [Not Recovered/Not Resolved]
  - White blood cell count increased [Unknown]
  - Pain [Unknown]

NARRATIVE: CASE EVENT DATE: 20131223
